FAERS Safety Report 6105099-2 (Version None)
Quarter: 2009Q1

REPORT INFORMATION
  Report Type: 
  Country: None (occurrence: None)
  Receive Date: 20090306
  Receipt Date: 20090225
  Transmission Date: 20090719
  Serious: Yes (Other)
  Sender: FDA-Public Use
  Company Number: DK-NOVOPROD-278168

PATIENT
  Age: 41 Year
  Sex: Female
  Weight: 60 kg

DRUGS (7)
  1. LEVEMIR [Suspect]
     Indication: TYPE 1 DIABETES MELLITUS
     Dosage: 10+6 QD
     Dates: start: 20080313, end: 20080509
  2. LEVEMIR [Suspect]
     Dates: start: 20080514
  3. INSULATARD [Suspect]
     Indication: TYPE 1 DIABETES MELLITUS
     Dosage: 10+6 QD
     Dates: start: 20080509, end: 20080520
  4. NOVORAPID [Suspect]
     Indication: TYPE 1 DIABETES MELLITUS
     Dosage: 7+5+3 QD
     Dates: start: 20081116
  5. BECONASE [Concomitant]
     Dosage: 1+1+1+1 DR. QD
     Route: 045
     Dates: start: 20060406
  6. BENADRYL [Concomitant]
     Dosage: 1 UNK, UNK
  7. FOLIC ACID [Concomitant]
     Dosage: 500 MG, QD

REACTIONS (3)
  - ABORTION SPONTANEOUS [None]
  - BLOOD GLUCOSE INCREASED [None]
  - KETONURIA [None]
